FAERS Safety Report 9463671 (Version 1)
Quarter: 2013Q3

REPORT INFORMATION
  Report Type: Report from Study
  Country: BR (occurrence: BR)
  Receive Date: 20130819
  Receipt Date: 20130819
  Transmission Date: 20140515
  Serious: Yes (Hospitalization)
  Sender: FDA-Public Use
  Company Number: PHHY2013BR088560

PATIENT
  Sex: Male
  Weight: 24.5 kg

DRUGS (3)
  1. EXJADE [Suspect]
     Indication: SICKLE CELL ANAEMIA
     Dosage: 750 MG, (1 250MG TABLET AND 1 500MG TABLET)
     Route: 048
  2. FOLIC ACID [Concomitant]
     Dosage: UNK UKN, UNK
  3. BENZETACIL [Concomitant]
     Dosage: UNK UKN, UNK

REACTIONS (4)
  - Pain [Recovering/Resolving]
  - Asthenia [Recovering/Resolving]
  - Pyrexia [Recovering/Resolving]
  - Vomiting [Recovered/Resolved]
